FAERS Safety Report 5619441-X (Version None)
Quarter: 2008Q1

REPORT INFORMATION
  Report Type: 
  Country: None (occurrence: None)
  Receive Date: 20080208
  Receipt Date: 20080204
  Transmission Date: 20080703
  Serious: Yes (Life-Threatening, Hospitalization)
  Sender: FDA-Public Use
  Company Number: US-RB-009192-08

PATIENT
  Sex: Female
  Weight: 65.25 kg

DRUGS (5)
  1. SUBOXONE [Suspect]
     Route: 060
     Dates: start: 20071213
  2. AMBIEN [Concomitant]
     Indication: INSOMNIA
  3. ABILIFY [Concomitant]
     Indication: DRUG USE FOR UNKNOWN INDICATION
  4. LISINOPRIL [Concomitant]
     Indication: DRUG USE FOR UNKNOWN INDICATION
     Dosage: UNKNOWN DOSE
  5. HUMALOG [Concomitant]
     Dosage: UNKNOWN DOSE

REACTIONS (1)
  - CARDIAC FAILURE CONGESTIVE [None]
